FAERS Safety Report 13840148 (Version 1)
Quarter: 2017Q3

REPORT INFORMATION
  Report Type: Spontaneous
  Country: US (occurrence: US)
  Receive Date: 20170807
  Receipt Date: 20170807
  Transmission Date: 20171127
  Serious: No
  Sender: FDA-Public Use
  Company Number: US-GLAXOSMITHKLINE-US2017117776

PATIENT
  Sex: Male
  Weight: 65 kg

DRUGS (1)
  1. EQUATE NICOTINE [Suspect]
     Active Substance: NICOTINE
     Indication: SMOKING CESSATION THERAPY
     Dosage: 21 MG, UNK
     Dates: start: 20170716, end: 20170720

REACTIONS (4)
  - Application site erythema [Unknown]
  - Application site reaction [Unknown]
  - Application site swelling [Unknown]
  - Application site pruritus [Unknown]
